FAERS Safety Report 9016459 (Version 1)
Quarter: 2013Q1

REPORT INFORMATION
  Report Type: Spontaneous
  Country: GR (occurrence: GR)
  Receive Date: 20130116
  Receipt Date: 20130116
  Transmission Date: 20140127
  Serious: Yes (Death, Hospitalization)
  Sender: FDA-Public Use
  Company Number: GR-TEVA-379904ISR

PATIENT
  Sex: Male

DRUGS (3)
  1. ETOPOSIDE [Suspect]
     Indication: TESTIS CANCER
     Dosage: 165 MG/M2 D1-3 Q3W
     Route: 042
  2. CISPLATIN [Suspect]
     Indication: TESTIS CANCER
     Dosage: 50 MG/M2 D1-2 Q3W
     Route: 065
  3. BLEOMYCIN [Suspect]
     Indication: TESTIS CANCER
     Dosage: 30MG D1+8+15 Q3W
     Route: 065

REACTIONS (7)
  - Haemoptysis [Fatal]
  - Dyspnoea [Fatal]
  - Pyrexia [Fatal]
  - Pancytopenia [Fatal]
  - Haemorrhage [Fatal]
  - Bone marrow failure [Fatal]
  - Pulmonary toxicity [Fatal]
